FAERS Safety Report 4383450-1 (Version None)
Quarter: 2004Q2

REPORT INFORMATION
  Report Type: 
  Country: None (occurrence: None)
  Receive Date: 20040622
  Receipt Date: 20040322
  Transmission Date: 20050107
  Serious: Yes (Death, Hospitalization)
  Sender: FDA-Public Use
  Company Number: 2004S1000844

PATIENT
  Age: 68 Year
  Sex: Male
  Weight: 52.1637 kg

DRUGS (7)
  1. EXTENDED PHENYTOIN SODIUM [Suspect]
     Indication: CONVULSION
     Dosage: 100MG TID, ORAL
     Route: 048
     Dates: start: 20010701, end: 20011201
  2. SIMVASTATIN [Concomitant]
  3. RANITIDINE [Concomitant]
  4. LANSOPRAZOLE [Concomitant]
  5. PHENOBARBITAL TAB [Concomitant]
  6. THEOPHYLLINE [Concomitant]
  7. ROFECOXIB [Concomitant]

REACTIONS (5)
  - ANTICONVULSANT DRUG LEVEL BELOW THERAPEUTIC [None]
  - APHASIA [None]
  - BRAIN DAMAGE [None]
  - CONVULSION [None]
  - MEDICATION ERROR [None]
